FAERS Safety Report 18339822 (Version 3)
Quarter: 2021Q3

REPORT INFORMATION
  Report Type: Spontaneous
  Country: US (occurrence: US)
  Receive Date: 20201002
  Receipt Date: 20210728
  Transmission Date: 20211014
  Serious: No
  Sender: FDA-Public Use
  Company Number: US-SHIRE-US202031983

PATIENT
  Sex: Female
  Weight: 54 kg

DRUGS (2)
  1. VPRIV [Suspect]
     Active Substance: VELAGLUCERASE ALFA
     Dosage: 9 INTERNATIONAL UNIT, 1/WEEK
     Route: 065
     Dates: start: 20200720
  2. VPRIV [Suspect]
     Active Substance: VELAGLUCERASE ALFA
     Indication: GAUCHER^S DISEASE
     Dosage: 400 VIAL, 1X/2WKS
     Route: 050
     Dates: start: 20200720

REACTIONS (2)
  - Pain in extremity [Unknown]
  - Exposure during pregnancy [Unknown]
